FAERS Safety Report 9559651 (Version 1)
Quarter: 2013Q3

REPORT INFORMATION
  Report Type: Spontaneous
  Country: US (occurrence: None)
  Receive Date: 20130909
  Receipt Date: 20130909
  Transmission Date: 20140515
  Serious: Yes (Hospitalization)
  Sender: FDA-Public Use
  Company Number: 381607

PATIENT
  Age: 49 Year
  Sex: Female
  Weight: 113.4 kg

DRUGS (13)
  1. VICTOZA (LIRAGLUTIDE) SOLUTION FOR INJECTION, 6MG/ML [Suspect]
     Indication: TYPE 2 DIABETES MELLITUS
     Route: 058
     Dates: start: 20110404, end: 20130624
  2. METFORMIN (METFORMIN) [Concomitant]
  3. LAMOTRIGINE (LAMOTRIGINE) [Concomitant]
  4. CYMBALTA (DULOXETINE HYDROCHLORIDE) [Concomitant]
  5. CYMBALTA (DULOXETIN HYDROCHLORIDE) [Concomitant]
  6. METOPROLOL (METOPROLOL) [Concomitant]
  7. SENNA [Concomitant]
  8. LANSOPRAZOLE (LANSOPRAZOLE) [Concomitant]
  9. VITAMIN D3 (COLECALCIFEROL) [Concomitant]
  10. CALCIUM CARBONATE (CALCIUM CARBONATE) [Concomitant]
  11. LISINOPRIL AND HYDROCHLOROTHIAZIDE) (HYDROCHLOROTHIAZIDE, LISINOPRIL) [Concomitant]
  12. ILOSONE (ERYTHROMYCIN ESTOLATE) [Concomitant]
  13. PRAVASTATIN (PRAVASTATIN) [Concomitant]

REACTIONS (1)
  - Pancreatitis [None]
